FAERS Safety Report 11194855 (Version 1)
Quarter: 2015Q2

REPORT INFORMATION
  Report Type: Spontaneous
  Country: US (occurrence: US)
  Receive Date: 20150617
  Receipt Date: 20150617
  Transmission Date: 20150821
  Serious: No
  Sender: FDA-Public Use
  Company Number: US-009507513-1505USA009682

PATIENT
  Age: 26 Year
  Sex: Female
  Weight: 91.61 kg

DRUGS (1)
  1. NEXPLANON [Suspect]
     Active Substance: ETONOGESTREL
     Indication: CONTRACEPTION
     Dosage: 1 ROD / 3 YEARS
     Route: 059
     Dates: start: 201410

REACTIONS (6)
  - Medical device complication [Recovered/Resolved]
  - Device difficult to use [Not Recovered/Not Resolved]
  - Device deployment issue [Not Recovered/Not Resolved]
  - Complication of device removal [Unknown]
  - Device difficult to use [Not Recovered/Not Resolved]
  - Weight loss poor [Unknown]

NARRATIVE: CASE EVENT DATE: 201410
